FAERS Safety Report 6167205-3 (Version None)
Quarter: 2009Q2

REPORT INFORMATION
  Report Type: 
  Country: None (occurrence: None)
  Receive Date: 20090424
  Receipt Date: 20090422
  Transmission Date: 20091009
  Serious: Yes (Other)
  Sender: FDA-Public Use
  Company Number: AU-PURDUE-USA_2009_0037938

PATIENT
  Age: 27 Month
  Sex: Male

DRUGS (3)
  1. MORPHINE SULFATE [Suspect]
     Indication: PAIN
     Dosage: 1 UNK, SINGLE
     Dates: start: 20090117, end: 20090117
  2. PAINSTOP                           /01057301/ [Suspect]
     Indication: PAIN
     Dosage: 2 UNK, UNK
     Route: 048
     Dates: start: 20090117
  3. NUROFEN [Concomitant]

REACTIONS (1)
  - MYOCLONUS [None]
